FAERS Safety Report 11711373 (Version 1)
Quarter: 2015Q4

REPORT INFORMATION
  Report Type: Spontaneous
  Country: US (occurrence: US)
  Receive Date: 20151104
  Receipt Date: 20151104
  Transmission Date: 20160304
  Serious: No
  Sender: FDA-Public Use
  Company Number: US-ELI_LILLY_AND_COMPANY-US201105005651

PATIENT
  Sex: Female

DRUGS (3)
  1. VITAMINS [Concomitant]
     Active Substance: VITAMINS
  2. FORTEO [Suspect]
     Active Substance: TERIPARATIDE
     Dosage: 20 UG, QOD
  3. FORTEO [Suspect]
     Active Substance: TERIPARATIDE
     Indication: OSTEOPOROSIS
     Dosage: 20 UG, QD
     Dates: start: 201103

REACTIONS (32)
  - Vision blurred [Unknown]
  - Amnesia [Unknown]
  - Dizziness [Unknown]
  - Diarrhoea [Unknown]
  - Swelling face [Unknown]
  - Medication error [Unknown]
  - Fatigue [Unknown]
  - Eyelid oedema [Unknown]
  - Vomiting [Unknown]
  - Erythema of eyelid [Unknown]
  - Constipation [Unknown]
  - Dyspnoea [Unknown]
  - Asthenia [Unknown]
  - Nausea [Unknown]
  - Bone pain [Unknown]
  - Swollen tongue [Unknown]
  - Injection site bruising [Unknown]
  - Insomnia [Unknown]
  - Chest pain [Not Recovered/Not Resolved]
  - Blood pressure abnormal [Unknown]
  - Palpitations [Unknown]
  - Ocular hyperaemia [Unknown]
  - Pain [Unknown]
  - Arthralgia [Unknown]
  - Myalgia [Unknown]
  - Fear [Unknown]
  - Dyspepsia [Unknown]
  - Headache [Unknown]
  - Muscular weakness [Unknown]
  - Injection site erythema [Unknown]
  - Eye swelling [Unknown]
  - Muscle spasms [Unknown]
